FAERS Safety Report 11703855 (Version 1)
Quarter: 2015Q4

REPORT INFORMATION
  Report Type: Spontaneous
  Country: RU (occurrence: None)
  Receive Date: 20151104
  Receipt Date: 20151104
  Transmission Date: 20160304
  Serious: No
  Sender: FDA-Public Use
  Company Number: 1510RUS012272

PATIENT
  Age: 13 Year
  Sex: Female

DRUGS (1)
  1. CEDAX [Suspect]
     Active Substance: CEFTIBUTEN DIHYDRATE
     Indication: ANTIBIOTIC THERAPY
     Route: 048

REACTIONS (1)
  - Drug ineffective [None]
